FAERS Safety Report 6144381-X (Version None)
Quarter: 2009Q2

REPORT INFORMATION
  Report Type: 
  Country: None (occurrence: None)
  Receive Date: 20090406
  Receipt Date: 20090331
  Transmission Date: 20091009
  Serious: No
  Sender: FDA-Public Use
  Company Number: US-B.I. PHARMACEUTICALS,INC./RIDGEFIELD-2009-BP-04083BP

PATIENT
  Sex: Male

DRUGS (4)
  1. ZANTAC 150 [Suspect]
     Indication: DYSPEPSIA
     Dosage: 150MG
     Route: 048
     Dates: start: 20090101, end: 20090101
  2. ZANTAC 150 [Suspect]
  3. ALPRAZOLAM [Concomitant]
     Indication: ANXIETY
  4. WARFARIN SODIUM [Concomitant]
     Indication: THROMBOSIS

REACTIONS (1)
  - VENTRICULAR EXTRASYSTOLES [None]
